FAERS Safety Report 5223192-3 (Version None)
Quarter: 2007Q1

REPORT INFORMATION
  Report Type: 
  Country: None (occurrence: None)
  Receive Date: 20070125
  Receipt Date: 20070110
  Transmission Date: 20070707
  Serious: Yes (Hospitalization, Other)
  Sender: FDA-Public Use
  Company Number: A001-320-876

PATIENT
  Age: 71 Year
  Sex: Male
  Weight: 70 kg

DRUGS (12)
  1. DONEPEZIL HCL [Suspect]
     Indication: VASCULAR DEMENTIA
     Dosage: SEE IMAGE
     Route: 048
     Dates: start: 20050825, end: 20051020
  2. DONEPEZIL HCL [Suspect]
     Indication: VASCULAR DEMENTIA
     Dosage: SEE IMAGE
     Route: 048
     Dates: start: 20051021, end: 20051026
  3. DONEPEZIL HCL [Suspect]
     Indication: VASCULAR DEMENTIA
     Dosage: SEE IMAGE
     Route: 048
     Dates: start: 20051027, end: 20051221
  4. DONEPEZIL HCL [Suspect]
     Indication: VASCULAR DEMENTIA
     Dosage: SEE IMAGE
     Route: 048
     Dates: start: 20060311, end: 20060823
  5. DONEPEZIL HCL [Suspect]
     Indication: VASCULAR DEMENTIA
     Dosage: DOUBLEBLIND, 1 IN 1 D, ORAL
     Route: 048
     Dates: start: 20050217, end: 20050802
  6. ASPIRIN [Concomitant]
  7. ATORVASTATIN CALCIUM [Concomitant]
  8. ENALAPRIL MALEATE [Concomitant]
  9. INSULIN [Concomitant]
  10. RIOMET [Concomitant]
  11. INDAPAMIDE [Concomitant]
  12. SODIUM PICOSULPHATE (SODIUM PICOSULFATE) [Concomitant]

REACTIONS (8)
  - COUGH [None]
  - GANGRENE [None]
  - MEMORY IMPAIRMENT [None]
  - PURULENT DISCHARGE [None]
  - PYREXIA [None]
  - SKIN GRAFT [None]
  - SKIN ULCER [None]
  - TOE AMPUTATION [None]
